FAERS Safety Report 25900162 (Version 1)
Quarter: 2025Q4

REPORT INFORMATION
  Report Type: Report from Study
  Country: US (occurrence: US)
  Receive Date: 20251009
  Receipt Date: 20251009
  Transmission Date: 20260118
  Serious: Yes (Other)
  Sender: ALEXION PHARMACEUTICALS
  Company Number: US-ALXN-202409USA000690US

PATIENT
  Age: 59 Year
  Sex: Male

DRUGS (1)
  1. STRENSIQ [Suspect]
     Active Substance: ASFOTASE ALFA
     Indication: Phosphorus metabolism disorder
     Dosage: 160 MILLIGRAM, TIW (80 MG SOLUTION VIAL), ROTATE INJECTION SITES

REACTIONS (8)
  - Pain [Unknown]
  - Arthralgia [Unknown]
  - Glaucoma [Unknown]
  - Osteoarthritis [Unknown]
  - Fatigue [Unknown]
  - Somnolence [Unknown]
  - Prostate cancer [Unknown]
  - Renal cyst [Unknown]
